FAERS Safety Report 5523263-8 (Version None)
Quarter: 2007Q4

REPORT INFORMATION
  Report Type: 
  Country: None (occurrence: None)
  Receive Date: 20071119
  Receipt Date: 20071119
  Transmission Date: 20080405
  Serious: Yes (Other)
  Sender: FDA-Public Use
  Company Number: None

PATIENT
  Sex: Male
  Weight: 114.3065 kg

DRUGS (8)
  1. OXCARBAZEPINE [Suspect]
     Indication: BIPOLAR DISORDER
     Dosage: 300 MG 1 AM, 1 P.M., 2 HS PO
     Route: 048
     Dates: start: 20071114, end: 20071116
  2. CLONIDINE [Concomitant]
  3. AVAPRO [Concomitant]
  4. AMLODIPINE [Concomitant]
  5. ABILIFY [Concomitant]
  6. ROZEREM [Concomitant]
  7. NEXIUM [Concomitant]
  8. RANITIDINE HCL [Concomitant]

REACTIONS (2)
  - GASTRITIS [None]
  - PHARMACEUTICAL PRODUCT COMPLAINT [None]
